FAERS Safety Report 25970478 (Version 1)
Quarter: 2025Q4

REPORT INFORMATION
  Report Type: Spontaneous
  Country: EU (occurrence: EU)
  Receive Date: 20251028
  Receipt Date: 20251028
  Transmission Date: 20260117
  Serious: Yes (Other)
  Sender: AMGEN
  Company Number: EU-AMGEN-FRASP2025210954

PATIENT
  Age: 80 Year
  Sex: Female

DRUGS (2)
  1. ECULIZUMAB [Suspect]
     Active Substance: ECULIZUMAB
     Indication: Thrombotic microangiopathy
     Dosage: 900 MILLIGRAM, QWK, FOR ONE MONTH ONLY
     Route: 065
  2. IXCHIQ [Concomitant]
     Active Substance: CHIKUNGUNYA VIRUS LR2006 OPY1 (ATTENUATED STRAIN) ANTIGEN

REACTIONS (6)
  - Interstitial lung disease [Unknown]
  - Cardiac failure [Unknown]
  - Drug effective for unapproved indication [Unknown]
  - Renal disorder [Unknown]
  - Amnesia [Unknown]
  - Off label use [Unknown]
